FAERS Safety Report 4385805-8 (Version None)
Quarter: 2004Q2

REPORT INFORMATION
  Report Type: 
  Country: None (occurrence: None)
  Receive Date: 20040623
  Receipt Date: 20040615
  Transmission Date: 20050107
  Serious: Yes (Death)
  Sender: FDA-Public Use
  Company Number: F01200401434

PATIENT
  Sex: Male

DRUGS (1)
  1. (FONDAPARINUX SODIUM) - SOLUTION - UNIT DOSE : UNKNOWN [Suspect]
     Indication: ORTHOPEDIC PROCEDURE
     Dosage: 2.5 MG
     Route: 058
     Dates: start: 20040310

REACTIONS (1)
  - DEATH [None]
